FAERS Safety Report 9788501 (Version 2)
Quarter: 2013Q4

REPORT INFORMATION
  Report Type: Spontaneous
  Country: DZ (occurrence: DZ)
  Receive Date: 20131230
  Receipt Date: 20131230
  Transmission Date: 20140711
  Serious: Yes (Other)
  Sender: FDA-Public Use
  Company Number: DZ-JNJFOC-20131205838

PATIENT
  Age: 80 Year
  Sex: Male
  Weight: 68 kg

DRUGS (2)
  1. ZYTIGA [Suspect]
     Indication: PROSTATE CANCER METASTATIC
     Dosage: 250 MG 4 TABLETS PER DAY
     Route: 048
     Dates: start: 20131116, end: 20131119
  2. PREDNISOLONE [Concomitant]
     Route: 048
     Dates: start: 20120826

REACTIONS (4)
  - Tachycardia [Unknown]
  - Hypertension [Unknown]
  - Malaise [Unknown]
  - Asthenia [Unknown]
